FAERS Safety Report 6607444 (Version 2)
Quarter: 2020Q3

REPORT INFORMATION
  Report Type: Report from Study
  Country: US (occurrence: US)
  Receive Date: 20080407
  Receipt Date: 20080425
  Transmission Date: 20201105
  Serious: Yes (Death, Hospitalization)
  Sender: FDA-Public Use
  Company Number: US-ROCHE-555641

PATIENT
  Age: 80 Year
  Sex: Female

DRUGS (1)
  1. IBANDRONIC ACID. [Suspect]
     Active Substance: IBANDRONIC ACID
     Indication: OSTEOPOROSIS
     Route: 065
     Dates: start: 200704

REACTIONS (4)
  - Pneumonia aspiration [Fatal]
  - Pharyngitis streptococcal [Unknown]
  - Acute respiratory distress syndrome [Fatal]
  - Ludwig angina [Unknown]

NARRATIVE: CASE EVENT DATE: 20070701
